FAERS Safety Report 6531051-9 (Version None)
Quarter: 2010Q1

REPORT INFORMATION
  Report Type: 
  Country: None (occurrence: None)
  Receive Date: 20100108
  Receipt Date: 20091023
  Transmission Date: 20100710
  Serious: No
  Sender: FDA-Public Use
  Company Number: A0813174A

PATIENT
  Age: 77 Year
  Sex: Female

DRUGS (5)
  1. LOVAZA [Suspect]
     Dosage: 4G PER DAY
     Route: 048
     Dates: start: 20070101, end: 20090501
  2. METOPROLOL TARTRATE [Concomitant]
  3. WARFARIN SODIUM [Concomitant]
  4. TIKOSYN [Concomitant]
  5. LIPITOR [Concomitant]

REACTIONS (4)
  - ERYTHEMA OF EYELID [None]
  - EYELID OEDEMA [None]
  - LIP SWELLING [None]
  - RASH [None]
